FAERS Safety Report 6269932-6 (Version None)
Quarter: 2009Q3

REPORT INFORMATION
  Report Type: 
  Country: None (occurrence: None)
  Receive Date: 20090716
  Receipt Date: 20071109
  Transmission Date: 20100115
  Serious: Yes (Hospitalization, Other)
  Sender: FDA-Public Use
  Company Number: US-ASTRAZENECA-2006UW22980

PATIENT
  Age: 13093 Day
  Sex: Female
  Weight: 90.7 kg

DRUGS (32)
  1. SEROQUEL [Suspect]
     Indication: BIPOLAR DISORDER
     Dosage: 100MG - 200MG
     Route: 048
     Dates: start: 20010622
  2. SEROQUEL [Suspect]
     Indication: DEPRESSION
     Dosage: 100MG - 200MG
     Route: 048
     Dates: start: 20010622
  3. SEROQUEL [Suspect]
     Route: 048
     Dates: end: 20050101
  4. SEROQUEL [Suspect]
     Route: 048
     Dates: end: 20050101
  5. ACTOS [Concomitant]
  6. AMITRIPTYLINE [Concomitant]
     Dosage: 25MG - 50MG
     Route: 048
  7. COMBIVENT [Concomitant]
  8. DICYCLOMINE [Concomitant]
     Route: 048
  9. GLUCOPHAGE [Concomitant]
     Route: 048
  10. HUMULIN R [Concomitant]
     Dosage: 70/30, 30 IN THE MORNING AND 25 IN THE EVENING
  11. KLONOPIN [Concomitant]
  12. LASIX [Concomitant]
  13. LISINOPRIL [Concomitant]
     Dosage: 10MG - 20MG
     Route: 048
  14. LITHIUM CARBONATE [Concomitant]
     Route: 048
  15. LORTAB [Concomitant]
     Route: 048
  16. METHADONE HCL [Concomitant]
     Route: 048
  17. PREVACID [Concomitant]
     Route: 048
  18. PRILOSEC [Concomitant]
     Route: 048
  19. REGLAN [Concomitant]
     Route: 042
  20. ROBAXIN [Concomitant]
     Route: 048
  21. ROBITUSSIN [Concomitant]
  22. ROXICET [Concomitant]
     Dosage: 5MG/325MG
     Route: 048
  23. SKELAXIN [Concomitant]
     Route: 048
  24. TRAZODONE [Concomitant]
     Route: 048
  25. TRAZODONE [Concomitant]
     Route: 048
  26. TRICOR [Concomitant]
     Route: 048
  27. ULTRAM [Concomitant]
     Route: 048
  28. ULTRAM [Concomitant]
     Route: 048
  29. VIOXX [Concomitant]
     Route: 048
  30. XANAX [Concomitant]
     Route: 048
  31. ZANTAC [Concomitant]
     Route: 048
  32. ZOLOFT [Concomitant]
     Dosage: 50MG -100MG
     Route: 048

REACTIONS (5)
  - DIABETES MELLITUS [None]
  - DIABETIC NEUROPATHY [None]
  - NEPHROLITHIASIS [None]
  - TYPE 2 DIABETES MELLITUS [None]
  - WEIGHT INCREASED [None]
